FAERS Safety Report 24971292 (Version 2)
Quarter: 2025Q1

REPORT INFORMATION
  Report Type: Spontaneous
  Country: US (occurrence: US)
  Receive Date: 20250214
  Receipt Date: 20250314
  Transmission Date: 20250408
  Serious: Yes (Hospitalization, Other)
  Sender: BLUEPRINT MEDICINES
  Company Number: US-Blueprint Medicines Corporation-2025-AER-00273

PATIENT
  Age: 12 Year
  Sex: Male

DRUGS (10)
  1. AYVAKIT [Suspect]
     Active Substance: AVAPRITINIB
     Indication: Brain neoplasm malignant
     Route: 065
     Dates: start: 202405
  2. AYVAKIT [Suspect]
     Active Substance: AVAPRITINIB
     Indication: Glioblastoma
     Route: 065
     Dates: start: 202403
  3. CARNITOR [Concomitant]
     Active Substance: LEVOCARNITINE
     Indication: Product used for unknown indication
     Route: 065
  4. DEPAKOTE [Concomitant]
     Active Substance: DIVALPROEX SODIUM
     Indication: Seizure
     Route: 065
  5. FOCALIN XR [Concomitant]
     Active Substance: DEXMETHYLPHENIDATE HYDROCHLORIDE
     Indication: Product used for unknown indication
     Route: 065
  6. ONFI [Concomitant]
     Active Substance: CLOBAZAM
     Indication: Seizure
     Route: 065
  7. VALTOCO [Concomitant]
     Active Substance: DIAZEPAM
     Indication: Product used for unknown indication
     Route: 065
  8. TEMODAR [Concomitant]
     Active Substance: TEMOZOLOMIDE
     Indication: Brain neoplasm malignant
     Route: 048
     Dates: start: 202403
  9. TEMODAR [Concomitant]
     Active Substance: TEMOZOLOMIDE
     Indication: Glioblastoma
     Route: 048
     Dates: start: 202404
  10. DIAZEPAM [Concomitant]
     Active Substance: DIAZEPAM
     Indication: Seizure
     Route: 065

REACTIONS (7)
  - Influenza [Recovered/Resolved]
  - Seizure [Not Recovered/Not Resolved]
  - Pyrexia [Unknown]
  - Vomiting [Unknown]
  - Hypokalaemia [Unknown]
  - Urinary incontinence [Recovered/Resolved]
  - Atonic seizures [Recovered/Resolved]

NARRATIVE: CASE EVENT DATE: 20241209
